FAERS Safety Report 5041747-6 (Version None)
Quarter: 2006Q2

REPORT INFORMATION
  Report Type: 
  Country: None (occurrence: None)
  Receive Date: 20060630
  Receipt Date: 20060621
  Transmission Date: 20061013
  Serious: Yes (Hospitalization, Other)
  Sender: FDA-Public Use
  Company Number: 2005103497

PATIENT
  Age: 42 Year
  Sex: Female
  Weight: 70.7611 kg

DRUGS (9)
  1. ZOLOFT [Suspect]
     Indication: ANXIETY
     Dosage: ORAL
     Route: 048
  2. ZOLOFT [Suspect]
     Indication: DEPRESSION
     Dosage: ORAL
     Route: 048
  3. ZOLOFT [Suspect]
     Indication: OBSESSIVE-COMPULSIVE DISORDER
     Dosage: ORAL
     Route: 048
  4. ZOLOFT [Suspect]
     Indication: PANIC ATTACK
     Dosage: ORAL
     Route: 048
  5. NEURONTIN [Suspect]
     Indication: DEPRESSION
     Dosage: ORAL
     Route: 048
  6. GEODON [Suspect]
     Indication: NEUROSIS
     Dosage: 40 MG
     Dates: start: 20050701
  7. CALADRYL [Suspect]
     Indication: DRUG USE FOR UNKNOWN INDICATION
     Dosage: TOPICAL
     Route: 061
  8. LAMICTAL [Concomitant]
  9. ALL OTHER THERAPEUTIC PRODUCTS [Concomitant]

REACTIONS (17)
  - BURNING SENSATION [None]
  - DRUG INEFFECTIVE [None]
  - FEAR [None]
  - FEELING GUILTY [None]
  - HUNGER [None]
  - HYPERPHAGIA [None]
  - INSOMNIA [None]
  - MUSCLE SPASMS [None]
  - NAUSEA [None]
  - NEUROSIS [None]
  - PARANOIA [None]
  - PRURITUS [None]
  - STRESS [None]
  - SUICIDE ATTEMPT [None]
  - TREMOR [None]
  - ULCER [None]
  - VOMITING [None]
